FAERS Safety Report 7555906-1 (Version None)
Quarter: 2011Q2

REPORT INFORMATION
  Report Type: 
  Country: None (occurrence: None)
  Receive Date: 20110618
  Receipt Date: 20110104
  Transmission Date: 20111010
  Serious: Yes (Hospitalization)
  Sender: FDA-Public Use
  Company Number: US-BAYER-201034725NA

PATIENT
  Age: 24 Year
  Sex: Female
  Weight: 101.59 kg

DRUGS (8)
  1. ORTHO TRI-CYCLEN [Concomitant]
     Dosage: UNK
     Dates: start: 20070101
  2. SINGULAIR [Concomitant]
  3. PERCOCET [Concomitant]
  4. CONCERTA [Concomitant]
  5. YAZ [Suspect]
     Indication: MENSTRUATION IRREGULAR
     Dosage: UNK
     Route: 048
     Dates: start: 20070101, end: 20070723
  6. LOVENOX [Concomitant]
     Dosage: UNK
     Dates: start: 20081001
  7. ALBUTEROL SULFATE AUTOHALER [Concomitant]
  8. YAZ [Suspect]
     Indication: CONTRACEPTION

REACTIONS (9)
  - JOINT SWELLING [None]
  - PULMONARY EMBOLISM [None]
  - DEEP VEIN THROMBOSIS [None]
  - METRORRHAGIA [None]
  - ABASIA [None]
  - HEART RATE INCREASED [None]
  - VENOUS INSUFFICIENCY [None]
  - PAIN [None]
  - OEDEMA PERIPHERAL [None]
